FAERS Safety Report 11385979 (Version 1)
Quarter: 2015Q3

REPORT INFORMATION
  Report Type: Spontaneous
  Country: US (occurrence: None)
  Receive Date: 20150813
  Receipt Date: 20150813
  Transmission Date: 20151125
  Serious: Yes (Hospitalization)
  Sender: FDA-Public Use
  Company Number: None

PATIENT
  Age: 49 Year
  Sex: Female
  Weight: 42.7 kg

DRUGS (3)
  1. CYTARABINE. [Concomitant]
     Active Substance: CYTARABINE
     Dates: end: 20010527
  2. DAUNORUBICIN [Suspect]
     Active Substance: DAUNORUBICIN
     Dates: end: 20010907
  3. TRETINOIN (ALL-TRANS RETINOIC ACID, ATRA) [Suspect]
     Active Substance: TRETINOIN
     Dates: end: 20021027

REACTIONS (3)
  - Pyrexia [None]
  - Cardiomyopathy [None]
  - Heart transplant [None]

NARRATIVE: CASE EVENT DATE: 20150725
